FAERS Safety Report 18949752 (Version 1)
Quarter: 2021Q1

REPORT INFORMATION
  Report Type: Spontaneous
  Country: US (occurrence: US)
  Receive Date: 20210227
  Receipt Date: 20210227
  Transmission Date: 20210420
  Serious: No
  Sender: FDA-Public Use
  Company Number: US-ROCHE-2610294

PATIENT
  Age: 18 Year
  Sex: Male
  Weight: 61.74 kg

DRUGS (1)
  1. XOLAIR [Suspect]
     Active Substance: OMALIZUMAB
     Indication: ASTHMA
     Dosage: PRE FILLED SYRINGE
     Route: 058
     Dates: start: 201803

REACTIONS (3)
  - Inappropriate schedule of product administration [Unknown]
  - Device malfunction [Unknown]
  - Exposure via skin contact [Recovered/Resolved]

NARRATIVE: CASE EVENT DATE: 20200526
